FAERS Safety Report 10246508 (Version 1)
Quarter: 2014Q2

REPORT INFORMATION
  Report Type: Spontaneous
  Country: US (occurrence: None)
  Receive Date: 20140617
  Receipt Date: 20140617
  Transmission Date: 20141212
  Serious: Yes (Other)
  Sender: FDA-Public Use
  Company Number: None

PATIENT
  Age: 23 Year
  Sex: 0

DRUGS (2)
  1. CLONAZEPAM 2 MG TEVA [Suspect]
     Indication: ANXIETY
     Dosage: 1 TAB THREE TIMES DAILY  TAKEN BY MOUTH
     Route: 048
     Dates: start: 20140609, end: 20140613
  2. CLONAZEPAM 2 MG TEVA [Suspect]
     Indication: TOURETTE^S DISORDER
     Dosage: 1 TAB THREE TIMES DAILY  TAKEN BY MOUTH
     Route: 048
     Dates: start: 20140609, end: 20140613

REACTIONS (5)
  - Product substitution issue [None]
  - Therapeutic response changed [None]
  - Drug withdrawal syndrome [None]
  - Product measured potency issue [None]
  - Drug ineffective [None]
